FAERS Safety Report 7576622-6 (Version None)
Quarter: 2011Q2

REPORT INFORMATION
  Report Type: 
  Country: None (occurrence: None)
  Receive Date: 20110628
  Receipt Date: 20110617
  Transmission Date: 20111010
  Serious: Yes (Hospitalization)
  Sender: FDA-Public Use
  Company Number: US-ELI_LILLY_AND_COMPANY-US200708003679

PATIENT
  Sex: Female
  Weight: 99.773 kg

DRUGS (7)
  1. BYETTA [Suspect]
     Dosage: 10 UG, 2/D
     Route: 058
     Dates: start: 20070101
  2. BYETTA [Suspect]
     Dosage: 10 UG, BID
     Route: 058
     Dates: start: 20110301
  3. VYTORIN [Concomitant]
  4. COREG [Concomitant]
     Dosage: UNK
  5. BYETTA [Suspect]
     Indication: TYPE 2 DIABETES MELLITUS
     Dosage: 5 UG, 2/D
     Route: 058
     Dates: start: 20060601, end: 20060701
  6. GLIPIZIDE [Concomitant]
     Indication: TYPE 2 DIABETES MELLITUS
     Dosage: 2 UNK, 2/D
     Route: 048
     Dates: start: 20030101
  7. BYETTA [Suspect]
     Dosage: 10 UG, 2/D
     Route: 058
     Dates: start: 20060701, end: 20070102

REACTIONS (8)
  - CARDIAC VALVE DISEASE [None]
  - POSTOPERATIVE WOUND INFECTION [None]
  - CARDIAC DISORDER [None]
  - WEIGHT DECREASED [None]
  - DRUG EFFECT DECREASED [None]
  - DECREASED APPETITE [None]
  - BLOOD GLUCOSE INCREASED [None]
  - BLOOD TRIGLYCERIDES INCREASED [None]
